FAERS Safety Report 9528067 (Version 1)
Quarter: 2013Q1

REPORT INFORMATION
  Report Type: Spontaneous
  Country: US (occurrence: None)
  Receive Date: 20130314
  Receipt Date: 20130314
  Transmission Date: 20140127
  Serious: No
  Sender: FDA-Public Use
  Company Number: 1212USA001265

PATIENT
  Age: 32 Year
  Sex: Male
  Weight: 99.8 kg

DRUGS (6)
  1. VICTRELIS (BOCEPREVIR) CAPSULE, 200MG [Suspect]
     Indication: HEPATITIS C
     Route: 048
     Dates: start: 20120723
  2. RIBAVIRIN (RIBAVIRIN) TABLET, 200 MG [Suspect]
     Route: 048
     Dates: start: 20120723
  3. PEGINTRON [Suspect]
     Route: 058
     Dates: start: 20120723, end: 2012
  4. ZOFRAN [Concomitant]
  5. LEXAPRO (ESCITALOPRAM OXALATE) [Concomitant]
  6. LAMICTAL (LAMOTRIGINE) [Concomitant]

REACTIONS (2)
  - Neuropathy peripheral [None]
  - Influenza like illness [None]
